FAERS Safety Report 9434898 (Version 1)
Quarter: 2013Q3

REPORT INFORMATION
  Report Type: Spontaneous
  Country: CA (occurrence: CA)
  Receive Date: 20130801
  Receipt Date: 20130801
  Transmission Date: 20140515
  Serious: Yes (Other)
  Sender: FDA-Public Use
  Company Number: CA-VERTEX PHARMACEUTICALS INC-2013-008442

PATIENT
  Age: 54 Year
  Sex: Male

DRUGS (8)
  1. INCIVEK [Suspect]
     Indication: HEPATITIS C
     Dosage: 750 MG, TID
     Route: 048
  2. PEGASYS [Suspect]
     Indication: HEPATITIS C
     Dosage: 180 ?G, QW
  3. RIBAVIRIN [Suspect]
     Indication: HEPATITIS C
     Dosage: 1200 MG, QD
  4. RIBAVIRIN [Suspect]
     Dosage: 600 MG, QD
  5. LORAZEPAM [Concomitant]
  6. PANTOPRAZOLE [Concomitant]
  7. TYLENOL [Concomitant]
  8. RAMIPRIL [Concomitant]

REACTIONS (3)
  - Neutropenia [Unknown]
  - Anaemia [Unknown]
  - Pruritus [Unknown]
